FAERS Safety Report 21940612 (Version 2)
Quarter: 2023Q1

REPORT INFORMATION
  Report Type: Spontaneous
  Country: US (occurrence: US)
  Receive Date: 20230201
  Receipt Date: 20230226
  Transmission Date: 20230417
  Serious: Yes (Other)
  Sender: FDA-Public Use
  Company Number: US-PIRAMAL CRITICAL CARE LIMITED-2023-PEL-000064

PATIENT

DRUGS (1)
  1. GABLOFEN [Suspect]
     Active Substance: BACLOFEN
     Indication: Product used for unknown indication
     Dosage: 230.6 MICROGRAM PER 24 HOURS
     Route: 037

REACTIONS (4)
  - Seizure like phenomena [Recovered/Resolved]
  - Lethargy [Recovered/Resolved]
  - Vital functions abnormal [Recovered/Resolved]
  - Gait disturbance [Recovered/Resolved]
